FAERS Safety Report 5671492-5 (Version None)
Quarter: 2008Q1

REPORT INFORMATION
  Report Type: 
  Country: None (occurrence: None)
  Receive Date: 20080318
  Receipt Date: 20080306
  Transmission Date: 20080703
  Serious: Yes (Other)
  Sender: FDA-Public Use
  Company Number: US-PFIZER INC-2008023239

PATIENT
  Sex: Female
  Weight: 70.5 kg

DRUGS (5)
  1. CHANTIX [Suspect]
     Indication: SMOKING CESSATION THERAPY
  2. LEXAPRO [Concomitant]
  3. ALPRAZOLAM [Concomitant]
  4. ABILIFY [Concomitant]
  5. LAMICTAL [Concomitant]

REACTIONS (2)
  - ABNORMAL BEHAVIOUR [None]
  - HOMICIDAL IDEATION [None]
